FAERS Safety Report 4703115-3 (Version None)
Quarter: 2005Q2

REPORT INFORMATION
  Report Type: 
  Country: None (occurrence: None)
  Receive Date: 20050629
  Receipt Date: 20050621
  Transmission Date: 20051028
  Serious: Yes (Other)
  Sender: FDA-Public Use
  Company Number: US-GLAXOSMITHKLINE-A0563636A

PATIENT
  Age: 12 Year
  Sex: Male

DRUGS (2)
  1. MALARONE [Suspect]
     Indication: MALARIA PROPHYLAXIS
     Dosage: 3TAB PER DAY
     Route: 048
     Dates: start: 20040714, end: 20040730
  2. NO CONCURRENT MEDICATION [Concomitant]

REACTIONS (7)
  - BACK PAIN [None]
  - BLOOD CREATINE PHOSPHOKINASE INCREASED [None]
  - CHROMATURIA [None]
  - HEPATIC ENZYME INCREASED [None]
  - MUSCLE SPASMS [None]
  - MUSCULAR WEAKNESS [None]
  - MYALGIA [None]
